FAERS Safety Report 15842358 (Version 2)
Quarter: 2019Q1

REPORT INFORMATION
  Report Type: Spontaneous
  Country: US (occurrence: US)
  Receive Date: 20190118
  Receipt Date: 20190121
  Transmission Date: 20190417
  Serious: No
  Sender: FDA-Public Use
  Company Number: US-SA-2019SA013038

PATIENT
  Age: 81 Year
  Sex: Male

DRUGS (2)
  1. TOUJEO [Suspect]
     Active Substance: INSULIN GLARGINE
     Dosage: 16 U, QD
  2. INSULIN LISPRO [Suspect]
     Active Substance: INSULIN LISPRO

REACTIONS (3)
  - Underdose [Unknown]
  - Device operational issue [Unknown]
  - Blood glucose increased [Unknown]
